FAERS Safety Report 5015279-5 (Version None)
Quarter: 2006Q2

REPORT INFORMATION
  Report Type: 
  Country: None (occurrence: None)
  Receive Date: 20060601
  Receipt Date: 20060522
  Transmission Date: 20061013
  Serious: Yes (Death, Life-Threatening, Hospitalization)
  Sender: FDA-Public Use
  Company Number: PHEH2006US06665

PATIENT
  Age: 54 Year
  Sex: Female
  Weight: 59.41 kg

DRUGS (6)
  1. TEGRETOL [Suspect]
     Indication: CONVULSION
     Dosage: 1200 MG, BID
     Route: 048
  2. TEMODAR [Suspect]
     Indication: OLIGODENDROGLIOMA
     Dosage: 200MG/M^2, QD X 5 DAYS Q 28 DAYS
     Route: 048
     Dates: end: 20060219
  3. PREVACID [Concomitant]
     Dosage: 30MG, UNK
     Route: 048
  4. TIGAN [Concomitant]
     Dosage: 2 TABS, UNK
     Route: 048
  5. KEPPRA [Concomitant]
     Dosage: 1400 UNK, BID
     Route: 048
  6. IRON [Concomitant]
     Dosage: 8 MG, UNK
     Route: 048

REACTIONS (17)
  - ANAEMIA [None]
  - APLASTIC ANAEMIA [None]
  - BAND NEUTROPHIL COUNT INCREASED [None]
  - BLOOD GLUCOSE INCREASED [None]
  - DYSPNOEA [None]
  - EOSINOPHIL COUNT DECREASED [None]
  - HAEMATOCRIT DECREASED [None]
  - HAEMOGLOBIN DECREASED [None]
  - LYMPHOCYTE COUNT INCREASED [None]
  - MEAN CELL VOLUME ABNORMAL [None]
  - MONOCYTE COUNT DECREASED [None]
  - NEUTROPHIL COUNT INCREASED [None]
  - PANCYTOPENIA [None]
  - PLATELET COUNT DECREASED [None]
  - PLATELET MORPHOLOGY ABNORMAL [None]
  - RED BLOOD CELL COUNT DECREASED [None]
  - WHITE BLOOD CELL COUNT DECREASED [None]
